FAERS Safety Report 8036179-2 (Version None)
Quarter: 2012Q1

REPORT INFORMATION
  Report Type: 
  Country: None (occurrence: None)
  Receive Date: 20120111
  Receipt Date: 20120103
  Transmission Date: 20120608
  Serious: Yes (Hospitalization)
  Sender: FDA-Public Use
  Company Number: PHHO2011GB019473

PATIENT
  Sex: Male
  Weight: 64.9 kg

DRUGS (5)
  1. BLINDED QAB149 [Suspect]
     Dosage: DOUBLE BLIND
     Dates: start: 20110225
  2. BLINDED PLACEBO [Suspect]
     Dosage: DOUBLE BLIND
     Dates: start: 20110225
  3. BLINDED QVA149 [Suspect]
     Dosage: DOUBLE BLIND
     Dates: start: 20110225
  4. SERTRALINE HYDROCHLORIDE [Concomitant]
     Indication: DEPRESSION
     Dosage: UNK
  5. BLINDED NO TREATMENT RECEIVED [Suspect]
     Dosage: DOUBLE BLIND
     Dates: start: 20110225

REACTIONS (1)
  - SMALL INTESTINAL OBSTRUCTION [None]
